FAERS Safety Report 6172590-2 (Version None)
Quarter: 2009Q2

REPORT INFORMATION
  Report Type: 
  Country: None (occurrence: None)
  Receive Date: 20090428
  Receipt Date: 20090413
  Transmission Date: 20091009
  Serious: Yes (Other)
  Sender: FDA-Public Use
  Company Number: 1-18100841

PATIENT
  Age: 23 Year
  Sex: Female

DRUGS (2)
  1. DOXYCYCLINE [Suspect]
     Indication: ACNE
     Dosage: 100 MG 2X/DAY, ORAL
     Route: 048
  2. TRETINOIN MICROSPHERE GEL [Concomitant]

REACTIONS (4)
  - BENIGN INTRACRANIAL HYPERTENSION [None]
  - NO THERAPEUTIC RESPONSE [None]
  - PAPILLOEDEMA [None]
  - VITH NERVE PARALYSIS [None]
